FAERS Safety Report 8194214-5 (Version None)
Quarter: 2012Q1

REPORT INFORMATION
  Report Type: 
  Country: None (occurrence: None)
  Receive Date: 20120308
  Receipt Date: 20120208
  Transmission Date: 20120608
  Serious: No
  Sender: FDA-Public Use
  Company Number: US-BAYER-US-2007-010421

PATIENT
  Age: 36 Year
  Sex: Female
  Weight: 70 kg

DRUGS (2)
  1. MIRENA [Suspect]
     Indication: CONTRACEPTION
     Dosage: 20 ?G/DAY, CONT
     Route: 015
     Dates: start: 20061201
  2. MIRENA [Suspect]
     Dosage: UNK
     Dates: start: 20120126

REACTIONS (2)
  - WEIGHT LOSS POOR [None]
  - WEIGHT INCREASED [None]
